FAERS Safety Report 20059286 (Version 2)
Quarter: 2021Q4

REPORT INFORMATION
  Report Type: Spontaneous
  Country: GB (occurrence: GB)
  Receive Date: 20211111
  Receipt Date: 20211228
  Transmission Date: 20220303
  Serious: Yes (Hospitalization)
  Sender: FDA-Public Use
  Company Number: GB-MYLANLABS-2021M1083358

PATIENT
  Age: 22 Year
  Sex: Male
  Weight: 86 kg

DRUGS (1)
  1. CLOZARIL [Suspect]
     Active Substance: CLOZAPINE
     Indication: Schizoaffective disorder
     Dosage: 550 MILLIGRAM, QD
     Route: 048
     Dates: start: 202101

REACTIONS (4)
  - Hospitalisation [Recovered/Resolved]
  - Treatment noncompliance [Recovered/Resolved]
  - Mental disorder [Unknown]
  - Off label use [Unknown]

NARRATIVE: CASE EVENT DATE: 20211102
